FAERS Safety Report 7773061-X (Version None)
Quarter: 2011Q3

REPORT INFORMATION
  Report Type: 
  Country: None (occurrence: None)
  Receive Date: 20110922
  Receipt Date: 20101227
  Transmission Date: 20111222
  Serious: No
  Sender: FDA-Public Use
  Company Number: US-ASTRAZENECA-2010SE60954

PATIENT
  Sex: Male

DRUGS (6)
  1. SEROQUEL [Suspect]
     Indication: ANGER
     Route: 048
     Dates: start: 20070101, end: 20101223
  2. SEROQUEL [Suspect]
     Route: 048
     Dates: start: 20101227
  3. LISINOPRIL [Concomitant]
     Dates: end: 20101225
  4. STATIN [Concomitant]
     Dates: end: 20101225
  5. FLOMAX [Concomitant]
     Dates: end: 20101225
  6. SEROQUEL [Suspect]
     Route: 048
     Dates: start: 20101225, end: 20101227

REACTIONS (6)
  - THERAPEUTIC RESPONSE UNEXPECTED [None]
  - NERVOUSNESS [None]
  - DRUG DOSE OMISSION [None]
  - INSOMNIA [None]
  - AGITATION [None]
  - FEELING OF RELAXATION [None]
